FAERS Safety Report 18588476 (Version 1)
Quarter: 2020Q4

REPORT INFORMATION
  Report Type: Spontaneous
  Country: US (occurrence: US)
  Receive Date: 20201207
  Receipt Date: 20201207
  Transmission Date: 20210114
  Serious: Yes (Other)
  Sender: FDA-Public Use
  Company Number: US-FLEXION THERAPEUTICS, INC.-2020FLS000102

PATIENT
  Age: 89 Year
  Sex: Female

DRUGS (3)
  1. ZILRETTA [Suspect]
     Active Substance: TRIAMCINOLONE ACETONIDE
     Indication: ARTHRITIS
     Route: 014
     Dates: start: 20201022, end: 20201022
  2. MONOVISC [Suspect]
     Active Substance: DEVICE
     Indication: PRODUCT USED FOR UNKNOWN INDICATION
     Route: 014
     Dates: start: 20201022, end: 20201022
  3. LATANOPROST. [Concomitant]
     Active Substance: LATANOPROST
     Indication: GLAUCOMA

REACTIONS (10)
  - Blood urea abnormal [Unknown]
  - Joint swelling [Unknown]
  - Eye pain [Unknown]
  - Flushing [Not Recovered/Not Resolved]
  - Body temperature increased [Unknown]
  - Dehydration [Unknown]
  - Headache [Not Recovered/Not Resolved]
  - Hypertensive urgency [Unknown]
  - Palpitations [Unknown]
  - Malaise [Unknown]

NARRATIVE: CASE EVENT DATE: 2020
